FAERS Safety Report 7739201-3 (Version None)
Quarter: 2011Q3

REPORT INFORMATION
  Report Type: 
  Country: None (occurrence: None)
  Receive Date: 20110909
  Receipt Date: 20110907
  Transmission Date: 20111222
  Serious: No
  Sender: FDA-Public Use
  Company Number: US-PFIZER INC-2011209935

PATIENT
  Sex: Male

DRUGS (6)
  1. SYMBICORT [Concomitant]
     Dosage: UNK
  2. SINGULAIR [Concomitant]
     Dosage: UNK
  3. MELOXICAM [Concomitant]
     Dosage: UNK
  4. ASTELIN [Concomitant]
     Dosage: UNK
  5. LYRICA [Suspect]
     Indication: INTERVERTEBRAL DISC PROTRUSION
     Dosage: UNK, 1X/DAY
     Route: 048
     Dates: start: 20110813, end: 20110906
  6. PRILOSEC [Concomitant]
     Dosage: UNK

REACTIONS (1)
  - LIBIDO DECREASED [None]
